FAERS Safety Report 4738912-1 (Version None)
Quarter: 2005Q3

REPORT INFORMATION
  Report Type: 
  Country: None (occurrence: None)
  Receive Date: 20050805
  Receipt Date: 20050725
  Transmission Date: 20060218
  Serious: Yes (Disabling, Other)
  Sender: FDA-Public Use
  Company Number: GXKR2005US01375

PATIENT
  Age: 55 Year
  Sex: Male

DRUGS (4)
  1. ATORVASTATIN [Suspect]
     Indication: HYPERLIPIDAEMIA
  2. LOVASTATIN [Suspect]
     Indication: HYPERLIPIDAEMIA
  3. PRAVASTATIN [Suspect]
     Indication: HYPERLIPIDAEMIA
  4. SIMVASTATIN [Suspect]
     Indication: HYPERLIPIDAEMIA

REACTIONS (3)
  - ANTIACETYLCHOLINE RECEPTOR ANTIBODY POSITIVE [None]
  - DYSARTHRIA [None]
  - MYASTHENIA GRAVIS [None]
